FAERS Safety Report 8616255-3 (Version None)
Quarter: 2012Q3

REPORT INFORMATION
  Report Type: 
  Country: None (occurrence: None)
  Receive Date: 20120823
  Receipt Date: 20120809
  Transmission Date: 20120928
  Serious: Yes (Other)
  Sender: FDA-Public Use
  Company Number: US-ROCHE-1101139

PATIENT
  Sex: Female

DRUGS (1)
  1. XOLAIR [Suspect]
     Indication: PRODUCT USED FOR UNKNOWN INDICATION

REACTIONS (7)
  - VOMITING [None]
  - NAUSEA [None]
  - URTICARIA [None]
  - PAIN IN EXTREMITY [None]
  - PRURITUS [None]
  - CHEST DISCOMFORT [None]
  - DYSPHEMIA [None]
